FAERS Safety Report 21787477 (Version 1)
Quarter: 2022Q4

REPORT INFORMATION
  Report Type: Spontaneous
  Country: US (occurrence: None)
  Receive Date: 20221228
  Receipt Date: 20221228
  Transmission Date: 20230113
  Serious: Yes (Hospitalization, Other)
  Sender: FDA-Public Use
  Company Number: US-FARMAPROD-202212-2690

PATIENT
  Age: 54 Year
  Sex: Female

DRUGS (27)
  1. OXERVATE [Suspect]
     Active Substance: CENEGERMIN-BKBJ
     Indication: Neurotrophic keratopathy
     Route: 047
     Dates: start: 20221110
  2. REXULTI [Concomitant]
     Active Substance: BREXPIPRAZOLE
  3. ERYTHROMYCIN-BENZOYL PEROXIDE [Concomitant]
     Active Substance: BENZOYL PEROXIDE\ERYTHROMYCIN
  4. MOXIFLOXACIN [Concomitant]
     Active Substance: MOXIFLOXACIN
  5. COMBIGAN [Concomitant]
     Active Substance: BRIMONIDINE TARTRATE\TIMOLOL MALEATE
     Dosage: 0.2%-0.5%
  6. LATANOPROST [Concomitant]
     Active Substance: LATANOPROST
  7. EPINEPHRINE [Concomitant]
     Active Substance: EPINEPHRINE
     Dosage: 0.3 MG / 0.3 AUTO INJECTION
  8. AMITRIPTYLINE HYDROCHLORIDE [Concomitant]
     Active Substance: AMITRIPTYLINE HYDROCHLORIDE
  9. MYRBETRIQ [Concomitant]
     Active Substance: MIRABEGRON
     Dosage: EXTENDED RELEASE 24 HOURS
  10. FLUTICASONE PROPIONATE [Concomitant]
     Active Substance: FLUTICASONE PROPIONATE
     Dosage: SPRAY SUSPENSION
  11. NYSTATIN [Concomitant]
     Active Substance: NYSTATIN
     Dosage: 100000 / GRAM
  12. FUROSEMIDE [Concomitant]
     Active Substance: FUROSEMIDE
  13. SOLIFENACIN SUCCINATE [Concomitant]
     Active Substance: SOLIFENACIN SUCCINATE
  14. NYSTATIN [Concomitant]
     Active Substance: NYSTATIN
     Dosage: 100000 / GRAM
  15. ONDANSETRON [Concomitant]
     Active Substance: ONDANSETRON
     Dosage: RAPID DISSOLVE
  16. TRIAMCINOLONE ACETONIDE [Concomitant]
     Active Substance: TRIAMCINOLONE ACETONIDE
  17. CLONIDINE HYDROCHLORIDE [Concomitant]
     Active Substance: CLONIDINE HYDROCHLORIDE
  18. TRIAMCINOLONE ACETONIDE [Concomitant]
     Active Substance: TRIAMCINOLONE ACETONIDE
  19. KETOCONAZOLE [Concomitant]
     Active Substance: KETOCONAZOLE
  20. ROPINIROLE HYDROCHLORIDE [Concomitant]
     Active Substance: ROPINIROLE HYDROCHLORIDE
  21. DULOXETINE HYDROCHLORIDE [Concomitant]
     Active Substance: DULOXETINE HYDROCHLORIDE
     Dosage: CAPSULE DELAYED RELEASE
  22. NARCAN [Concomitant]
     Active Substance: NALOXONE HYDROCHLORIDE
  23. TOBRAMYCIN [Concomitant]
     Active Substance: TOBRAMYCIN
  24. XTAMPZA ER [Concomitant]
     Active Substance: OXYCODONE
     Dosage: CAPSULE SPRINKLE 12 HOURS
  25. FLUOCINONIDE [Concomitant]
     Active Substance: FLUOCINONIDE
  26. PREDNISOLONE ACETATE [Concomitant]
     Active Substance: PREDNISOLONE ACETATE
  27. OXYCODONE HYDROCHLORIDE [Concomitant]
     Active Substance: OXYCODONE HYDROCHLORIDE

REACTIONS (2)
  - Hypertension [Unknown]
  - Eye operation [Unknown]

NARRATIVE: CASE EVENT DATE: 20221216
